FAERS Safety Report 7642225-8 (Version None)
Quarter: 2011Q3

REPORT INFORMATION
  Report Type: 
  Country: None (occurrence: None)
  Receive Date: 20110728
  Receipt Date: 20110719
  Transmission Date: 20111222
  Serious: Yes (Other)
  Sender: FDA-Public Use
  Company Number: PHHY2011US65279

PATIENT
  Age: 15 Year
  Sex: Female

DRUGS (1)
  1. BROMOCRIPTINE MESYLATE [Suspect]
     Indication: HYPERPROLACTINAEMIA
     Dosage: 10 MG, UNK
     Route: 048

REACTIONS (2)
  - VISUAL FIELD DEFECT [None]
  - CONDITION AGGRAVATED [None]
